FAERS Safety Report 8241499-2 (Version None)
Quarter: 2012Q1

REPORT INFORMATION
  Report Type: 
  Country: None (occurrence: None)
  Receive Date: 20120328
  Receipt Date: 20110808
  Transmission Date: 20120608
  Serious: Yes (Death)
  Sender: FDA-Public Use
  Company Number: US-COVIDIEN/TYCO HEALTHCARE/MALLINCKRODT-T201101553

PATIENT
  Sex: Female

DRUGS (3)
  1. METHADOSE [Suspect]
     Indication: DRUG DEPENDENCE
  2. XANAX [Suspect]
  3. ALCOHOL [Suspect]

REACTIONS (1)
  - MULTIPLE DRUG OVERDOSE [None]
